FAERS Safety Report 22916386 (Version 2)
Quarter: 2023Q4

REPORT INFORMATION
  Report Type: Report from Study
  Country: CN (occurrence: CN)
  Receive Date: 20230907
  Receipt Date: 20231207
  Transmission Date: 20240109
  Serious: Yes (Other)
  Sender: FDA-Public Use
  Company Number: CN-TAKEDA-2023TUS086608

PATIENT
  Age: 29 Year
  Sex: Male
  Weight: 67 kg

DRUGS (28)
  1. ADVATE [Suspect]
     Active Substance: ANTIHEMOPHILIC FACTOR, HUMAN RECOMBINANT
     Indication: Factor VIII deficiency
     Dosage: UNK
     Route: 042
     Dates: start: 20200814
  2. ADVATE [Suspect]
     Active Substance: ANTIHEMOPHILIC FACTOR, HUMAN RECOMBINANT
     Indication: Factor VIII deficiency
     Dosage: UNK
     Route: 042
     Dates: start: 20200814
  3. ADVATE [Suspect]
     Active Substance: ANTIHEMOPHILIC FACTOR, HUMAN RECOMBINANT
     Indication: Factor VIII deficiency
     Dosage: UNK
     Route: 042
     Dates: start: 20200814
  4. ADVATE [Suspect]
     Active Substance: ANTIHEMOPHILIC FACTOR, HUMAN RECOMBINANT
     Indication: Prophylaxis
  5. ADVATE [Suspect]
     Active Substance: ANTIHEMOPHILIC FACTOR, HUMAN RECOMBINANT
     Indication: Prophylaxis
  6. ADVATE [Suspect]
     Active Substance: ANTIHEMOPHILIC FACTOR, HUMAN RECOMBINANT
     Indication: Prophylaxis
  7. ANTIHEMOPHILIC FACTOR HUMAN [Concomitant]
     Active Substance: ANTIHEMOPHILIC FACTOR HUMAN
     Indication: Haemostasis
     Dosage: 1400 INTERNATIONAL UNIT, QD
     Route: 065
     Dates: start: 20210121, end: 20210122
  8. ANTIHEMOPHILIC FACTOR HUMAN [Concomitant]
     Active Substance: ANTIHEMOPHILIC FACTOR HUMAN
     Dosage: 1400 INTERNATIONAL UNIT, QD
     Route: 065
     Dates: start: 20210123, end: 20210123
  9. ANTIHEMOPHILIC FACTOR HUMAN [Concomitant]
     Active Substance: ANTIHEMOPHILIC FACTOR HUMAN
     Dosage: 1400 INTERNATIONAL UNIT, TID
     Route: 065
     Dates: start: 20210124, end: 20210125
  10. ANTIHEMOPHILIC FACTOR HUMAN [Concomitant]
     Active Substance: ANTIHEMOPHILIC FACTOR HUMAN
     Dosage: 1400 INTERNATIONAL UNIT, BID
     Route: 065
     Dates: start: 20210126, end: 20210126
  11. VALPROATE SODIUM [Concomitant]
     Active Substance: VALPROATE SODIUM
     Indication: Haemorrhage intracranial
     Dosage: 0.8 GRAM, SINGLE
     Route: 065
     Dates: start: 20210121, end: 20210121
  12. VALPROATE SODIUM [Concomitant]
     Active Substance: VALPROATE SODIUM
     Indication: Epilepsy
     Dosage: 0.5 GRAM, BID
     Route: 065
     Dates: start: 20210121
  13. VALPROATE SODIUM [Concomitant]
     Active Substance: VALPROATE SODIUM
     Dosage: 0.5 GRAM, QD
     Route: 065
     Dates: start: 20220101
  14. VITAMIN K1 [Concomitant]
     Active Substance: PHYTONADIONE
     Indication: Supplementation therapy
     Dosage: 10 MILLIGRAM, SINGLE
     Route: 065
     Dates: start: 20210121, end: 20210121
  15. ESOMEPRAZOLE SODIUM [Concomitant]
     Active Substance: ESOMEPRAZOLE SODIUM
     Indication: Haemorrhage intracranial
     Dosage: 40 MILLIGRAM, SINGLE
     Route: 065
     Dates: start: 20210121, end: 20210121
  16. TROPISETRON [Concomitant]
     Active Substance: TROPISETRON
     Indication: Haemorrhage intracranial
     Dosage: 4.48 MILLIGRAM
     Route: 065
     Dates: start: 20210121, end: 20210121
  17. BLOOD, BOVINE [Concomitant]
     Active Substance: BLOOD, BOVINE
     Indication: Haemorrhage intracranial
     Dosage: 1 GRAM, QD
     Route: 065
     Dates: start: 20210121, end: 20210121
  18. MANNATIDE [Concomitant]
     Indication: Haemorrhage intracranial
     Dosage: L20 MILLIGRAM, SINGLE
     Route: 065
     Dates: start: 20210121, end: 20210121
  19. OXIRACETAM [Concomitant]
     Active Substance: OXIRACETAM
     Indication: Haemorrhage intracranial
     Dosage: 4 GRAM, SINGLE
     Route: 065
     Dates: start: 20210121, end: 20210121
  20. DEZOCINE [Concomitant]
     Active Substance: DEZOCINE
     Indication: Haemorrhage intracranial
     Dosage: 5 MILLIGRAM, QD
     Route: 065
     Dates: start: 20210122, end: 20210126
  21. BUTORPHANOL [Concomitant]
     Active Substance: BUTORPHANOL
     Indication: Haemorrhage intracranial
     Dosage: 2 MILLIGRAM, QD
     Route: 065
     Dates: start: 20210122, end: 20210123
  22. PROMETHAZINE [Concomitant]
     Active Substance: PROMETHAZINE HYDROCHLORIDE
     Indication: Haemorrhage intracranial
     Dosage: 50 MILLIGRAM, SINGLE
     Route: 065
     Dates: start: 20210122, end: 20210122
  23. ACETAMINOPHEN\DIHYDROCODEINE BITARTRATE [Concomitant]
     Active Substance: ACETAMINOPHEN\DIHYDROCODEINE BITARTRATE
     Indication: Haemorrhage intracranial
     Dosage: 0.51 GRAM, QD
     Route: 065
     Dates: start: 20210122, end: 20210122
  24. ACETAMINOPHEN\DIHYDROCODEINE BITARTRATE [Concomitant]
     Active Substance: ACETAMINOPHEN\DIHYDROCODEINE BITARTRATE
     Dosage: 0.51 GRAM, QD
     Route: 065
     Dates: start: 20210124, end: 20210124
  25. ZOLPIDEM [Concomitant]
     Active Substance: ZOLPIDEM TARTRATE
     Indication: Haemorrhage intracranial
     Dosage: 10 MILLIGRAM, SINGLE
     Route: 065
     Dates: start: 20210126, end: 20210126
  26. LANSOPRAZOLE [Concomitant]
     Active Substance: LANSOPRAZOLE
     Indication: Haemorrhage intracranial
     Dosage: 30 MILLIGRAM, QD
     Route: 065
     Dates: start: 20210122, end: 20210202
  27. EDARAVONE [Concomitant]
     Active Substance: EDARAVONE
     Indication: Haemorrhage intracranial
     Dosage: 20 MILLILITER, QD
     Route: 065
     Dates: start: 20210128, end: 20210202
  28. IBUPROFEN [Concomitant]
     Active Substance: IBUPROFEN
     Dosage: UNK UNK, BID
     Route: 065
     Dates: start: 20220508, end: 20220901

REACTIONS (1)
  - Epilepsy [Unknown]

NARRATIVE: CASE EVENT DATE: 20210121
